FAERS Safety Report 8421770-1 (Version None)
Quarter: 2012Q2

REPORT INFORMATION
  Report Type: 
  Country: None (occurrence: None)
  Receive Date: 20120605
  Receipt Date: 20120605
  Transmission Date: 20120825
  Serious: Yes (Life-Threatening, Hospitalization)
  Sender: FDA-Public Use
  Company Number: None

PATIENT
  Sex: Male
  Weight: 106.5953 kg

DRUGS (2)
  1. TRILEPTAL [Suspect]
     Indication: AFFECTIVE DISORDER
     Dosage: OXCARBAZEPINE 300 DAILY ?
     Dates: start: 20100615, end: 20100715
  2. TRILEPTAL [Suspect]
     Indication: AFFECTIVE DISORDER
     Dosage: OXCARBAZEPINE 600 DAILY ?
     Dates: start: 20100701, end: 20100722

REACTIONS (3)
  - BLOOD SODIUM DECREASED [None]
  - PAIN [None]
  - ARTHRALGIA [None]
